FAERS Safety Report 5247693-7 (Version None)
Quarter: 2007Q1

REPORT INFORMATION
  Report Type: 
  Country: None (occurrence: None)
  Receive Date: 20070220
  Receipt Date: 20070208
  Transmission Date: 20070707
  Serious: Yes (Life-Threatening)
  Sender: FDA-Public Use
  Company Number: 2006SP004890

PATIENT
  Age: 48 Year
  Sex: Male
  Weight: 64.4108 kg

DRUGS (4)
  1. PEG-INTRON [Suspect]
     Indication: HEPATITIS C
     Dosage: 150 MCG;BIW;SC
     Route: 058
     Dates: start: 20060918, end: 20061031
  2. RIBAVIRIN [Suspect]
     Indication: HEPATITIS C
     Dosage: BID
  3. IRON [Concomitant]
  4. SELENIUM SULFIDE [Concomitant]

REACTIONS (8)
  - ACTIVITIES OF DAILY LIVING IMPAIRED [None]
  - DEVICE FAILURE [None]
  - FATIGUE [None]
  - INCORRECT DOSE ADMINISTERED [None]
  - LUNG DISORDER [None]
  - OXYGEN SATURATION DECREASED [None]
  - PHARMACEUTICAL PRODUCT COMPLAINT [None]
  - SCAR [None]
